FAERS Safety Report 4974154-2 (Version None)
Quarter: 2006Q1

REPORT INFORMATION
  Report Type: 
  Country: None (occurrence: None)
  Receive Date: 20060130
  Receipt Date: 20050708
  Transmission Date: 20060701
  Serious: No
  Sender: FDA-Public Use
  Company Number: COT_0279_2005

PATIENT
  Age: 53 Year
  Sex: Female
  Weight: 89.3586 kg

DRUGS (12)
  1. VENTAVIS [Suspect]
     Indication: PULMONARY HYPERTENSION
     Dosage: 2.5 MCG ONCE IH
     Dates: start: 20050620, end: 20050620
  2. VENTAVIS [Suspect]
     Indication: PULMONARY HYPERTENSION
     Dosage: 5 MCCG ONCE IH
     Dates: start: 20050620
  3. VENTAVIS [Suspect]
     Indication: PULMONARY HYPERTENSION
     Dosage: 5 MCG 6TO9X/DAY IH
     Dates: start: 20050620
  4. PREDNISONE [Concomitant]
  5. HUMULIN N [Concomitant]
  6. TRACLEER [Concomitant]
  7. ALBUTEROL [Concomitant]
  8. ADVAIR DISKUS 100/50 [Concomitant]
  9. ATROVENT [Concomitant]
  10. MULTIVITAMIN [Concomitant]
  11. FERROUS SULFATE TAB [Concomitant]
  12. CALCIUM CARBONATE [Concomitant]

REACTIONS (4)
  - BLOOD GLUCOSE DECREASED [None]
  - COUGH [None]
  - DIZZINESS [None]
  - PHARYNGOLARYNGEAL PAIN [None]
